FAERS Safety Report 7051923-9 (Version None)
Quarter: 2010Q4

REPORT INFORMATION
  Report Type: 
  Country: None (occurrence: None)
  Receive Date: 20101019
  Receipt Date: 20101004
  Transmission Date: 20110411
  Serious: Yes (Other)
  Sender: FDA-Public Use
  Company Number: US-GENENTECH-307871

PATIENT

DRUGS (2)
  1. RITUXIMAB [Suspect]
     Indication: WALDENSTROM'S MACROGLOBULINAEMIA
     Dosage: 375 MG/M2, DAYS1,8,15 + 22
     Route: 065
  2. BORTEZOMIB [Suspect]
     Indication: WALDENSTROM'S MACROGLOBULINAEMIA RECURRENT
     Dosage: 1.6 MG/M2, DAYS1,8,15
     Route: 042

REACTIONS (12)
  - ANAEMIA [None]
  - DIZZINESS [None]
  - FATIGUE [None]
  - HYPERSENSITIVITY [None]
  - LEUKOPENIA [None]
  - LYMPHOPENIA [None]
  - NAUSEA [None]
  - NEUTROPENIA [None]
  - PYREXIA [None]
  - SYNCOPE [None]
  - THROMBOCYTOPENIA [None]
  - VOMITING [None]
